FAERS Safety Report 10671457 (Version 1)
Quarter: 2014Q4

REPORT INFORMATION
  Report Type: Spontaneous
  Country: US (occurrence: None)
  Receive Date: 20141219
  Receipt Date: 20141219
  Transmission Date: 20150529
  Serious: Yes (Hospitalization, Other)
  Sender: FDA-Public Use
  Company Number: ADR-2014-02356

PATIENT
  Age: 42 Year
  Sex: Male

DRUGS (1)
  1. BACLOFEN. [Suspect]
     Active Substance: BACLOFEN
     Indication: MUSCLE SPASTICITY

REACTIONS (8)
  - Fatigue [None]
  - Condition aggravated [None]
  - Cervical spinal stenosis [None]
  - Muscle spasticity [None]
  - Muscular weakness [None]
  - Device malfunction [None]
  - Fall [None]
  - Abasia [None]
